FAERS Safety Report 16026984 (Version 1)
Quarter: 2019Q1

REPORT INFORMATION
  Report Type: Spontaneous
  Country: US (occurrence: US)
  Receive Date: 20190303
  Receipt Date: 20190303
  Transmission Date: 20190418
  Serious: No
  Sender: FDA-Public Use
  Company Number: US-IMPAX LABORATORIES, LLC-2018-IPXL-00367

PATIENT
  Age: 77 Year
  Sex: Male
  Weight: 89 kg

DRUGS (2)
  1. RYTARY [Suspect]
     Active Substance: CARBIDOPA\LEVODOPA
     Indication: PARKINSON^S DISEASE
     Dosage: 48.75/195 MG, ONE CAPSULE 4 TIMES DAILY
     Route: 048
     Dates: start: 20180119, end: 20180128
  2. RYTARY [Suspect]
     Active Substance: CARBIDOPA\LEVODOPA
     Dosage: 61.25/245 MG, ONE CAPSULE FOUR TIMES DAILY
     Route: 048
     Dates: start: 20180119, end: 20180128

REACTIONS (5)
  - Therapeutic response shortened [Unknown]
  - Fear [Recovered/Resolved]
  - Feeling abnormal [Recovered/Resolved]
  - Nervousness [Recovered/Resolved]
  - Tremor [Recovered/Resolved]

NARRATIVE: CASE EVENT DATE: 20180119
